FAERS Safety Report 7677358-3 (Version None)
Quarter: 2011Q3

REPORT INFORMATION
  Report Type: 
  Country: None (occurrence: None)
  Receive Date: 20110811
  Receipt Date: 20110729
  Transmission Date: 20111222
  Serious: Yes (Other)
  Sender: FDA-Public Use
  Company Number: US-ELI_LILLY_AND_COMPANY-US201108001123

PATIENT
  Sex: Female

DRUGS (1)
  1. CYMBALTA [Suspect]
     Dosage: 60 MG, QD

REACTIONS (4)
  - PANCREATIC NEOPLASM [None]
  - PANCREATIC CARCINOMA [None]
  - HEPATIC ENZYME INCREASED [None]
  - JAUNDICE [None]
